FAERS Safety Report 4286137-9 (Version None)
Quarter: 2004Q1

REPORT INFORMATION
  Report Type: 
  Country: None (occurrence: None)
  Receive Date: 20040205
  Receipt Date: 20040130
  Transmission Date: 20041129
  Serious: Yes (Other)
  Sender: FDA-Public Use
  Company Number: AU-BRISTOL-MYERS SQUIBB COMPANY-12493532

PATIENT
  Age: 64 Year
  Sex: Male

DRUGS (3)
  1. PRAVACHOL [Suspect]
     Dosage: THERAPY FROM: ^2 YEARS AGO^; DOSE WAS DECREASED TO 20MG ONCE DAILY ^3 MOS AGO^
     Route: 048
  2. AVAPRO HCT [Concomitant]
     Dosage: DOSE VALUE: 150/12.5 MG
     Route: 048
  3. ASPIRIN [Concomitant]
     Route: 048

REACTIONS (1)
  - ATRIAL FIBRILLATION [None]
